FAERS Safety Report 6945919-2 (Version None)
Quarter: 2010Q3

REPORT INFORMATION
  Report Type: 
  Country: None (occurrence: None)
  Receive Date: 20100824
  Receipt Date: 20100713
  Transmission Date: 20110219
  Serious: Yes (Hospitalization)
  Sender: FDA-Public Use
  Company Number: 2010-2487

PATIENT
  Age: 70 Year
  Sex: Male

DRUGS (1)
  1. SOMATULINE DEPOT [Suspect]
     Indication: GASTROINTESTINAL DISORDER
     Dosage: (120 MG,1 IN 28 D),INTRAMUSCULAR
     Route: 030
     Dates: start: 20090608

REACTIONS (4)
  - DIARRHOEA [None]
  - ILEUS [None]
  - OFF LABEL USE [None]
  - WEIGHT DECREASED [None]
